FAERS Safety Report 6163971-1 (Version None)
Quarter: 2009Q2

REPORT INFORMATION
  Report Type: 
  Country: None (occurrence: None)
  Receive Date: 20090422
  Receipt Date: 20090410
  Transmission Date: 20091009
  Serious: Yes (Death)
  Sender: FDA-Public Use
  Company Number: KR-PFIZER INC-2009198207

PATIENT

DRUGS (2)
  1. VORICONAZOLE [Suspect]
     Indication: ASPERGILLOSIS
     Dosage: 300 MG, 2X/DAY
     Route: 042
     Dates: start: 20080309, end: 20080312
  2. MIDAZOLAM [Concomitant]
     Indication: SEDATIVE THERAPY
     Dosage: UNK
     Route: 042
     Dates: start: 20080301, end: 20080312

REACTIONS (1)
  - DEATH [None]
